FAERS Safety Report 6272061-9 (Version None)
Quarter: 2009Q3

REPORT INFORMATION
  Report Type: 
  Country: None (occurrence: None)
  Receive Date: 20090717
  Receipt Date: 20090707
  Transmission Date: 20100115
  Serious: Yes (Death)
  Sender: FDA-Public Use
  Company Number: A0797189A

PATIENT
  Age: 50 Year
  Sex: Female

DRUGS (1)
  1. AVANDIA [Suspect]
     Indication: DIABETES MELLITUS
     Dosage: 8MG PER DAY
     Route: 065
     Dates: start: 20040929, end: 20070508

REACTIONS (1)
  - MYOCARDIAL INFARCTION [None]
